FAERS Safety Report 7867818-4 (Version None)
Quarter: 2011Q4

REPORT INFORMATION
  Report Type: 
  Country: None (occurrence: None)
  Receive Date: 20111028
  Receipt Date: 20110812
  Transmission Date: 20120403
  Serious: No
  Sender: FDA-Public Use
  Company Number: US-BAYER-2011-073287

PATIENT

DRUGS (1)
  1. ULTRAVIST 150 [Suspect]

REACTIONS (1)
  - ADVERSE EVENT [None]
